FAERS Safety Report 6475974-8 (Version None)
Quarter: 2009Q4

REPORT INFORMATION
  Report Type: 
  Country: None (occurrence: None)
  Receive Date: 20091204
  Receipt Date: 20091203
  Transmission Date: 20100525
  Serious: Yes (Other)
  Sender: FDA-Public Use
  Company Number: US-KINGPHARMUSA00001-K200901485

PATIENT
  Age: 10 Year
  Sex: Male

DRUGS (1)
  1. EPIPEN [Suspect]
     Indication: ANAPHYLACTIC REACTION
     Dosage: 0.3 MG, SINGLE
     Route: 030
     Dates: start: 20091123, end: 20091123

REACTIONS (1)
  - PAIN IN EXTREMITY [None]
